FAERS Safety Report 9143910 (Version 2)
Quarter: 2013Q1

REPORT INFORMATION
  Report Type: Spontaneous
  Country: US (occurrence: US)
  Receive Date: 20130306
  Receipt Date: 20130320
  Transmission Date: 20140127
  Serious: Yes (Hospitalization)
  Sender: FDA-Public Use
  Company Number: US-TEVA-389809USA

PATIENT
  Sex: Female

DRUGS (2)
  1. QVAR [Suspect]
  2. SYMBICORT [Suspect]

REACTIONS (1)
  - Local swelling [Unknown]
